FAERS Safety Report 9886956 (Version 1)
Quarter: 2014Q1

REPORT INFORMATION
  Report Type: Spontaneous
  Country: DE (occurrence: DE)
  Receive Date: 20140211
  Receipt Date: 20140211
  Transmission Date: 20141002
  Serious: Yes (Hospitalization)
  Sender: FDA-Public Use
  Company Number: GXKR2014DE000819

PATIENT
  Sex: Female

DRUGS (4)
  1. VERAPAMIL 1A PHARMA [Suspect]
     Dosage: 60 MG DAILY
     Route: 048
  2. ISOPTIN RR - SLOW RELEASE [Suspect]
     Dosage: 1/2 DF IN THE EVENING
     Dates: end: 201303
  3. LORZAAR PROTECT [Concomitant]
     Dosage: 1 DF, BID
  4. HYDROCHLOROTHIAZID [Concomitant]
     Dosage: 60 MG DAILY

REACTIONS (2)
  - Cerebellar haemorrhage [Unknown]
  - Erythema [Not Recovered/Not Resolved]
